FAERS Safety Report 5576823-2 (Version None)
Quarter: 2007Q4

REPORT INFORMATION
  Report Type: 
  Country: None (occurrence: None)
  Receive Date: 20071228
  Receipt Date: 20071220
  Transmission Date: 20080405
  Serious: Yes (Other)
  Sender: FDA-Public Use
  Company Number: JP-ABBOTT-06P-087-0342192-00

PATIENT
  Sex: Male

DRUGS (13)
  1. NORVIR [Suspect]
     Indication: HIV INFECTION
     Route: 048
     Dates: start: 20060116, end: 20060713
  2. NORVIR [Suspect]
     Route: 048
     Dates: start: 20060714, end: 20061116
  3. NORVIR [Suspect]
     Route: 048
     Dates: start: 20061117
  4. ATAZANAVIR SULFATE [Suspect]
     Indication: HIV INFECTION
     Route: 048
     Dates: start: 20060116, end: 20060713
  5. ATAZANAVIR SULFATE [Suspect]
     Route: 048
     Dates: start: 20061117
  6. FOSAMPRENAVIR [Suspect]
     Indication: HIV INFECTION
     Route: 048
     Dates: start: 20060714, end: 20061116
  7. LAMIVUDINE/ABACAVIR [Concomitant]
     Indication: HIV INFECTION
     Route: 048
     Dates: start: 20050401
  8. EFAVIRENZ [Concomitant]
     Indication: HIV INFECTION
     Route: 048
     Dates: start: 20060116
  9. PAROXETINE HCL [Concomitant]
     Indication: GENERALISED ANXIETY DISORDER
     Route: 048
     Dates: start: 20060116, end: 20060203
  10. ZOLPIDEM TARTRATE [Concomitant]
     Indication: GENERALISED ANXIETY DISORDER
     Route: 048
     Dates: start: 20060116, end: 20060202
  11. ZOLPIDEM TARTRATE [Concomitant]
     Route: 048
     Dates: start: 20060203, end: 20061117
  12. DOMPERIDONE [Concomitant]
     Indication: GENERALISED ANXIETY DISORDER
     Route: 048
     Dates: start: 20060116
  13. PIPRAZOLAM [Concomitant]
     Indication: GENERALISED ANXIETY DISORDER
     Route: 048
     Dates: start: 20060303

REACTIONS (3)
  - BLOOD BILIRUBIN INCREASED [None]
  - HYPOAESTHESIA ORAL [None]
  - RASH [None]
